FAERS Safety Report 8924280 (Version 1)
Quarter: 2012Q4

REPORT INFORMATION
  Report Type: Spontaneous
  Country: GB (occurrence: None)
  Receive Date: 20121116
  Receipt Date: 20121116
  Transmission Date: 20130627
  Serious: Yes (Other)
  Sender: FDA-Public Use
  Company Number: GER/UKI/12/0026621

PATIENT
  Age: 30 Year
  Sex: Female

DRUGS (1)
  1. CETIRIZINE (CETIRIZINE) [Suspect]
     Indication: ALLERGY
     Dosage: 1 Dosage forms,  1 in 1 D,  Oral
     Route: 048
     Dates: start: 20121029, end: 20121029

REACTIONS (3)
  - Dizziness [None]
  - Heart rate increased [None]
  - Activities of daily living impaired [None]
